FAERS Safety Report 6678224-2 (Version None)
Quarter: 2010Q2

REPORT INFORMATION
  Report Type: 
  Country: None (occurrence: None)
  Receive Date: 20100408
  Receipt Date: 20100408
  Transmission Date: 20101027
  Serious: Yes (Other)
  Sender: FDA-Public Use
  Company Number: None

PATIENT
  Age: 60 Year
  Sex: Female
  Weight: 63.5036 kg

DRUGS (8)
  1. CHANTIX [Suspect]
     Indication: SMOKING CESSATION THERAPY
     Dosage: 1MG BID PO
     Route: 048
     Dates: start: 20091231, end: 20100310
  2. FLUOXETINE [Concomitant]
  3. HYDROCHLOROTHIAZIDE [Concomitant]
  4. EMBEDA [Concomitant]
  5. EVISTA [Concomitant]
  6. GLUCOSAMINE/CHONDROITIN [Concomitant]
  7. FISH OIL [Concomitant]
  8. VITAMIN D3 [Concomitant]

REACTIONS (2)
  - DEPRESSION [None]
  - IRRITABILITY [None]
